FAERS Safety Report 4610304-5 (Version None)
Quarter: 2005Q1

REPORT INFORMATION
  Report Type: 
  Country: None (occurrence: None)
  Receive Date: 20050314
  Receipt Date: 20041214
  Transmission Date: 20050727
  Serious: Yes (Other)
  Sender: FDA-Public Use
  Company Number: 2004242169US

PATIENT
  Age: 82 Year
  Sex: Female

DRUGS (16)
  1. CELEBREX [Suspect]
     Indication: ARTHRITIS
     Dosage: (1 IN 1 D),
     Dates: start: 20030305
  2. DILANTIN [Suspect]
     Indication: CONVULSION
     Dosage: 200 MG (100 MG, 1 D), ORAL
     Route: 048
     Dates: start: 20031021
  3. DILANTIN [Suspect]
     Indication: DIZZINESS
     Dosage: 200 MG (100 MG, 1 D), ORAL
     Route: 048
     Dates: start: 20031021
  4. LEVOTHYROXINE SODIUM [Concomitant]
  5. LISINOPRIL [Concomitant]
  6. RANITIDINE [Concomitant]
  7. CONJUGATED ESTROGENS [Concomitant]
  8. TOLTERODINE TARTRATE [Concomitant]
  9. ASPIRIN [Concomitant]
  10. CALCIUM WITH VITAMIN D (CALCIUM PHOSPHATE, CALCIUM SODIUM LACTATE, ERG [Concomitant]
  11. TOCOPHEROL (TOCOPHEROL) [Concomitant]
  12. ASCORBIC ACID [Concomitant]
  13. CYANOCOBALAMIN [Concomitant]
  14. PYRIDOXINE HCL [Concomitant]
  15. MULTIVITAMINS (ASCORBIC ACID, ERGOCALCIFEROL, FOLIC ACID, NICOTINAMIDE [Concomitant]
  16. VITAMIN B (VITAMIN B) [Concomitant]

REACTIONS (8)
  - ARTHRALGIA [None]
  - CEREBRAL ATROPHY [None]
  - CEREBROVASCULAR ACCIDENT [None]
  - DIZZINESS [None]
  - ELECTROENCEPHALOGRAM ABNORMAL [None]
  - GAIT DISTURBANCE [None]
  - VERTIGO [None]
  - VISION BLURRED [None]
